FAERS Safety Report 18630180 (Version 1)
Quarter: 2020Q4

REPORT INFORMATION
  Report Type: Spontaneous
  Country: US (occurrence: US)
  Receive Date: 20201217
  Receipt Date: 20201217
  Transmission Date: 20210114
  Serious: No
  Sender: FDA-Public Use
  Company Number: US-PERRIGO-19US014406

PATIENT
  Sex: Female
  Weight: 56.69 kg

DRUGS (9)
  1. BACITRACIN. [Suspect]
     Active Substance: BACITRACIN
     Dosage: 1 APPLICATION, QHS
     Route: 047
     Dates: start: 2018
  2. BACITRACIN. [Suspect]
     Active Substance: BACITRACIN
     Dosage: 1 APPLICATION, QHS
     Route: 047
     Dates: start: 2018
  3. ERYTHROMYCIN. [Concomitant]
     Active Substance: ERYTHROMYCIN
     Indication: BLEPHARITIS
     Dosage: UNKNOWN, THREE TIMES WEEKLY
     Route: 047
     Dates: start: 201907
  4. BACITRACIN. [Suspect]
     Active Substance: BACITRACIN
     Indication: BLEPHARITIS
     Dosage: 1 APPLICATION, QHS
     Route: 047
     Dates: start: 2018
  5. BACITRACIN. [Suspect]
     Active Substance: BACITRACIN
     Dosage: 1 APPLICATION, 2 TO 3 TIMES WEEKLY
     Route: 047
     Dates: start: 2018, end: 201910
  6. CEPTIN [Concomitant]
     Active Substance: CEPHRADINE
     Indication: SINUSITIS
     Dosage: UNK
     Route: 065
     Dates: start: 201904, end: 201904
  7. ACTONEL [Concomitant]
     Active Substance: RISEDRONATE SODIUM
     Indication: OSTEOPOROSIS
     Dosage: UNK
     Route: 065
  8. LISINOPRIL. [Concomitant]
     Active Substance: LISINOPRIL
     Indication: HYPERTENSION
     Dosage: UNK
     Route: 065
  9. ROSUVASTATIN. [Concomitant]
     Active Substance: ROSUVASTATIN
     Indication: BLOOD CHOLESTEROL INCREASED
     Dosage: UNK
     Route: 065

REACTIONS (7)
  - Dry eye [Not Recovered/Not Resolved]
  - Eye pruritus [Not Recovered/Not Resolved]
  - Asthenopia [Not Recovered/Not Resolved]
  - Ocular rosacea [Not Recovered/Not Resolved]
  - Eye pain [Not Recovered/Not Resolved]
  - Inappropriate schedule of product administration [Recovered/Resolved]
  - Eye irritation [Not Recovered/Not Resolved]

NARRATIVE: CASE EVENT DATE: 2018
